FAERS Safety Report 17554916 (Version 3)
Quarter: 2020Q3

REPORT INFORMATION
  Report Type: Spontaneous
  Country: US (occurrence: US)
  Receive Date: 20200318
  Receipt Date: 20200819
  Transmission Date: 20201102
  Serious: No
  Sender: FDA-Public Use
  Company Number: US-PFIZER INC-2020117307

PATIENT
  Age: 44 Year
  Sex: Male

DRUGS (3)
  1. SOMAVERT [Suspect]
     Active Substance: PEGVISOMANT
     Indication: HYPOTHALAMO-PITUITARY DISORDER
     Dosage: 30 MG, UNK
     Dates: start: 20150702
  2. SOMAVERT [Suspect]
     Active Substance: PEGVISOMANT
     Indication: ACROMEGALY
     Dosage: 30 MG, DAILY
     Route: 058
     Dates: start: 20150121
  3. SOMAVERT [Suspect]
     Active Substance: PEGVISOMANT
     Indication: THYROID NEOPLASM

REACTIONS (1)
  - Insulin-like growth factor abnormal [Unknown]
